FAERS Safety Report 6057483-3 (Version None)
Quarter: 2009Q1

REPORT INFORMATION
  Report Type: 
  Country: None (occurrence: None)
  Receive Date: 20090126
  Receipt Date: 20090126
  Transmission Date: 20090719
  Serious: Yes (Life-Threatening, Disabling, Other)
  Sender: FDA-Public Use
  Company Number: None

PATIENT
  Age: 24 Year
  Sex: Male
  Weight: 74.8435 kg

DRUGS (2)
  1. HALDOL [Suspect]
     Dates: start: 20090122, end: 20090124
  2. PROLIXIN [Concomitant]

REACTIONS (3)
  - DYSKINESIA [None]
  - MUSCULOSKELETAL STIFFNESS [None]
  - TRISMUS [None]
